FAERS Safety Report 9300705 (Version 2)
Quarter: 2013Q3

REPORT INFORMATION
  Report Type: Report from Study
  Country: DE (occurrence: DE)
  Receive Date: 20130521
  Receipt Date: 20130723
  Transmission Date: 20140515
  Serious: Yes (Hospitalization)
  Sender: FDA-Public Use
  Company Number: PHHO2012DE009583

PATIENT
  Age: 71 Year
  Sex: Male
  Weight: 80 kg

DRUGS (5)
  1. TIOTROPIUM [Suspect]
     Indication: CHRONIC OBSTRUCTIVE PULMONARY DISEASE
     Dosage: 18 UG, QD
     Dates: start: 20120611
  2. FORADIL [Suspect]
     Indication: CHRONIC OBSTRUCTIVE PULMONARY DISEASE
     Dosage: 12 UG, BID
     Dates: start: 20120611
  3. XARELTO [Suspect]
     Indication: ATRIAL FIBRILLATION
     Dosage: 15 MG, QD
     Route: 048
  4. ACTIVASE [Concomitant]
     Indication: DIABETES MELLITUS
  5. L-THYROXIN [Concomitant]
     Indication: CEREBROVASCULAR ACCIDENT
     Dosage: 50 MG, QD
     Route: 048

REACTIONS (1)
  - Haematuria [Recovered/Resolved]
